FAERS Safety Report 6611303-4 (Version None)
Quarter: 2010Q1

REPORT INFORMATION
  Report Type: 
  Country: None (occurrence: None)
  Receive Date: 20100301
  Receipt Date: 20100301
  Transmission Date: 20100710
  Serious: No
  Sender: FDA-Public Use
  Company Number: None

PATIENT
  Age: 47 Year
  Sex: Female
  Weight: 51.2565 kg

DRUGS (1)
  1. AMOXICILLIN [Suspect]
     Indication: SINUSITIS
     Dosage: 1 PILL DAILY DENTAL
     Route: 004
     Dates: start: 20100208, end: 20100215

REACTIONS (2)
  - DRUG HYPERSENSITIVITY [None]
  - SINUS CONGESTION [None]
